FAERS Safety Report 8367391-0 (Version None)
Quarter: 2012Q2

REPORT INFORMATION
  Report Type: 
  Country: None (occurrence: None)
  Receive Date: 20120517
  Receipt Date: 20120510
  Transmission Date: 20120825
  Serious: Yes (Hospitalization)
  Sender: FDA-Public Use
  Company Number: US-UCBSA-056781

PATIENT
  Age: 40 Year
  Sex: Female
  Weight: 83.46 kg

DRUGS (3)
  1. ORTHO TRI-CYCLEN LO [Concomitant]
     Indication: CONTRACEPTION
     Route: 048
     Dates: start: 19990101
  2. VITAMIN B-12 [Concomitant]
     Indication: CROHN'S DISEASE
  3. CIMZIA [Suspect]
     Indication: CROHN'S DISEASE
     Route: 058
     Dates: start: 20091019

REACTIONS (1)
  - POSTOPERATIVE WOUND INFECTION [None]
